FAERS Safety Report 5828443-X (Version None)
Quarter: 2008Q3

REPORT INFORMATION
  Report Type: 
  Country: None (occurrence: None)
  Receive Date: 20080731
  Receipt Date: 20080721
  Transmission Date: 20090109
  Serious: Yes (Other)
  Sender: FDA-Public Use
  Company Number: US-ALLERGAN-0808414US

PATIENT
  Sex: Female

DRUGS (1)
  1. BOTOX COSMETIC [Suspect]
     Indication: SKIN WRINKLING
     Dosage: 40 UNITS, SINGLE
     Route: 030
     Dates: start: 20080707, end: 20080707

REACTIONS (8)
  - DIZZINESS [None]
  - NAUSEA [None]
  - NERVE COMPRESSION [None]
  - PARAESTHESIA [None]
  - SINUSITIS [None]
  - THROAT TIGHTNESS [None]
  - TREMOR [None]
  - VISUAL FIELD DEFECT [None]
